FAERS Safety Report 5593468-9 (Version None)
Quarter: 2008Q1

REPORT INFORMATION
  Report Type: 
  Country: None (occurrence: None)
  Receive Date: 20080116
  Receipt Date: 20080111
  Transmission Date: 20080703
  Serious: Yes (Other)
  Sender: FDA-Public Use
  Company Number: ES-BRISTOL-MYERS SQUIBB COMPANY-13968904

PATIENT
  Sex: Male

DRUGS (1)
  1. SPRYCEL [Suspect]
     Indication: CHRONIC MYELOID LEUKAEMIA
     Dosage: 1ST NOV 2007 THE THERAPY WAS INTERRUPTED.RESTARTED AT 50MG/12HOURS
     Route: 048

REACTIONS (4)
  - ANAEMIA [None]
  - RETINAL VEIN THROMBOSIS [None]
  - RETINOPATHY [None]
  - VISION BLURRED [None]
